FAERS Safety Report 9851455 (Version 1)
Quarter: 2014Q1

REPORT INFORMATION
  Report Type: Spontaneous
  Country: US (occurrence: US)
  Receive Date: 20140129
  Receipt Date: 20140129
  Transmission Date: 20141002
  Serious: Yes (Hospitalization)
  Sender: FDA-Public Use
  Company Number: US-BIOGENIDEC-2014BI007164

PATIENT
  Age: 67 Year
  Sex: Female

DRUGS (2)
  1. TYSABRI [Suspect]
     Indication: MULTIPLE SCLEROSIS
     Route: 042
     Dates: start: 20080805, end: 20130826
  2. AVONEX [Concomitant]
     Indication: MULTIPLE SCLEROSIS
     Route: 030
     Dates: start: 20070106

REACTIONS (5)
  - Pneumothorax traumatic [Recovered/Resolved]
  - Pulmonary contusion [Recovered/Resolved]
  - Contusion [Recovered/Resolved]
  - Rib fracture [Recovered/Resolved]
  - Road traffic accident [Recovered/Resolved]
